FAERS Safety Report 9358611 (Version 2)
Quarter: 2013Q2

REPORT INFORMATION
  Report Type: Spontaneous
  Country: DE (occurrence: DE)
  Receive Date: 20130620
  Receipt Date: 20130627
  Transmission Date: 20140414
  Serious: Yes (Other)
  Sender: FDA-Public Use
  Company Number: GXKR2013DE002135

PATIENT
  Sex: 0

DRUGS (1)
  1. LAMOTRIGINE [Suspect]
     Dosage: MATERNAL DOSE: 400 MG/DAY
     Route: 063

REACTIONS (2)
  - Somnolence [Recovered/Resolved]
  - Failure to thrive [Recovered/Resolved]
